FAERS Safety Report 16756877 (Version 4)
Quarter: 2020Q3

REPORT INFORMATION
  Report Type: Report from Study
  Country: PE (occurrence: PE)
  Receive Date: 20190829
  Receipt Date: 20200930
  Transmission Date: 20201102
  Serious: Yes (Hospitalization, Other)
  Sender: FDA-Public Use
  Company Number: PHHY2019PE197828

PATIENT
  Sex: Male

DRUGS (1)
  1. TASIGNA [Suspect]
     Active Substance: NILOTINIB
     Indication: FOETAL EXPOSURE DURING PREGNANCY
     Dosage: FETAL DRUG EXPOSURE VIA FATHER: 800 MG QD
     Route: 064

REACTIONS (7)
  - Premature baby [Recovering/Resolving]
  - Low birth weight baby [Not Recovered/Not Resolved]
  - Nervous system disorder [Unknown]
  - Weight gain poor [Unknown]
  - Oxygen consumption decreased [Unknown]
  - Foetal growth restriction [Unknown]
  - Exposure via father [Unknown]

NARRATIVE: CASE EVENT DATE: 20190825
